FAERS Safety Report 9727132 (Version 1)
Quarter: 2013Q4

REPORT INFORMATION
  Report Type: Report from Study
  Country: US (occurrence: US)
  Receive Date: 20131203
  Receipt Date: 20131203
  Transmission Date: 20140711
  Serious: Yes (Hospitalization)
  Sender: FDA-Public Use
  Company Number: PHEH2013US025003

PATIENT
  Age: 66 Year
  Sex: Female

DRUGS (1)
  1. TOBI [Suspect]
     Indication: BRONCHIECTASIS
     Dosage: 5 ML, BID
     Dates: start: 20130408, end: 20130911

REACTIONS (1)
  - Cerebrovascular accident [Recovered/Resolved]
